FAERS Safety Report 17293478 (Version 1)
Quarter: 2020Q1

REPORT INFORMATION
  Report Type: Spontaneous
  Country: US (occurrence: US)
  Receive Date: 20200120
  Receipt Date: 20200120
  Transmission Date: 20200409
  Serious: Yes (Hospitalization)
  Sender: FDA-Public Use
  Company Number: None

PATIENT
  Age: 45 Year
  Sex: Female
  Weight: 127.7 kg

DRUGS (3)
  1. AZITHROMYCIN ANHYDROUS. [Concomitant]
     Active Substance: AZITHROMYCIN ANHYDROUS
     Dates: start: 20191231, end: 20200104
  2. CEFTRIAXONE. [Suspect]
     Active Substance: CEFTRIAXONE
     Indication: PNEUMONIA
     Route: 042
     Dates: start: 20191231, end: 20200104
  3. VANCOMYCIN [Concomitant]
     Active Substance: VANCOMYCIN
     Dates: start: 20191231, end: 20200102

REACTIONS (6)
  - Skin exfoliation [None]
  - Stevens-Johnson syndrome [None]
  - Blister [None]
  - Influenza [None]
  - Pneumonia [None]
  - Rash [None]

NARRATIVE: CASE EVENT DATE: 20200108
